FAERS Safety Report 5837233-3 (Version None)
Quarter: 2008Q3

REPORT INFORMATION
  Report Type: 
  Country: None (occurrence: None)
  Receive Date: 20080731
  Receipt Date: 20080610
  Transmission Date: 20090109
  Serious: No
  Sender: FDA-Public Use
  Company Number: US200806002564

PATIENT
  Age: 55 Year
  Sex: Female
  Weight: 72.6 kg

DRUGS (4)
  1. BYETTA [Suspect]
     Indication: WEIGHT CONTROL
     Dosage: 5 UG, 2/D, SUBCUTANEOUS; 10 UG, 2/D, SUBCUTANEOUS
     Route: 058
     Dates: start: 20080422, end: 20080521
  2. BYETTA [Suspect]
     Indication: WEIGHT CONTROL
     Dosage: 5 UG, 2/D, SUBCUTANEOUS; 10 UG, 2/D, SUBCUTANEOUS
     Route: 058
     Dates: start: 20080522
  3. EXENATIDE 5MCG PEN, DISPOSABLE DEVICE [Concomitant]
  4. SYNTHROID [Concomitant]

REACTIONS (7)
  - DECREASED APPETITE [None]
  - FATIGUE [None]
  - INCORRECT DOSE ADMINISTERED [None]
  - INJECTION SITE IRRITATION [None]
  - NAUSEA [None]
  - PALPITATIONS [None]
  - THYROID DISORDER [None]
